FAERS Safety Report 8803367 (Version 1)
Quarter: 2012Q4

REPORT INFORMATION
  Report Type: 
  Country: JP (occurrence: JP)
  Receive Date: 20120924
  Receipt Date: 20120924
  Transmission Date: 20130627
  Serious: Yes (Hospitalization)
  Sender: FDA-Public Use
  Company Number: JP-JNJFOC-20120905034

PATIENT
  Age: 19 Year
  Sex: Male
  Weight: 53.1 kg

DRUGS (4)
  1. REMICADE [Suspect]
     Indication: JUVENILE ARTHRITIS
     Dosage: every 5-6 weeks
     Route: 042
  2. REMICADE [Suspect]
     Indication: JUVENILE ARTHRITIS
     Dosage: 100mg/dose, at 0, 2 and 6 weeks and every 8 weeks thereafter
     Route: 042
  3. PREDNISOLONE [Concomitant]
     Indication: JUVENILE ARTHRITIS
     Route: 065
  4. METHOTREXATE [Concomitant]
     Indication: JUVENILE ARTHRITIS
     Route: 065

REACTIONS (1)
  - Germ cell cancer [Recovered/Resolved]
